FAERS Safety Report 25808109 (Version 1)
Quarter: 2025Q3

REPORT INFORMATION
  Report Type: Spontaneous
  Country: US (occurrence: US)
  Receive Date: 20250916
  Receipt Date: 20250916
  Transmission Date: 20251020
  Serious: Yes (Hospitalization, Other)
  Sender: PFIZER
  Company Number: US-PFIZER INC-202500180494

PATIENT
  Age: 76 Year
  Sex: Female

DRUGS (3)
  1. IBRANCE [Suspect]
     Active Substance: PALBOCICLIB
     Route: 048
  2. PIQRAY [Suspect]
     Active Substance: ALPELISIB
  3. ITOVEBI [Suspect]
     Active Substance: INAVOLISIB

REACTIONS (8)
  - Illness [Recovering/Resolving]
  - Dehydration [Recovering/Resolving]
  - Renal disorder [Recovering/Resolving]
  - Diarrhoea [Recovering/Resolving]
  - Malignant neoplasm progression [Recovered/Resolved]
  - Dry eye [Recovering/Resolving]
  - Weight decreased [Recovering/Resolving]
  - White blood cell count decreased [Recovering/Resolving]
